FAERS Safety Report 25691137 (Version 1)
Quarter: 2025Q3

REPORT INFORMATION
  Report Type: Spontaneous
  Country: TR (occurrence: TR)
  Receive Date: 20250818
  Receipt Date: 20250818
  Transmission Date: 20251021
  Serious: Yes (Hospitalization, Other)
  Sender: INSUD PHARMA
  Company Number: TR-INSUD PHARMA-2508TR06624

PATIENT

DRUGS (1)
  1. LANSOPRAZOLE [Suspect]
     Active Substance: LANSOPRAZOLE
     Indication: Product used for unknown indication
     Route: 042

REACTIONS (11)
  - Septic shock [Recovering/Resolving]
  - Chills [Recovering/Resolving]
  - Pyrexia [Recovering/Resolving]
  - Asthenia [Recovering/Resolving]
  - Fatigue [Recovering/Resolving]
  - Hypotension [Recovering/Resolving]
  - Tachypnoea [Recovering/Resolving]
  - Tachycardia [Recovering/Resolving]
  - Metabolic acidosis [Recovering/Resolving]
  - Acute kidney injury [Recovering/Resolving]
  - Self-medication [Unknown]
